FAERS Safety Report 13127617 (Version 3)
Quarter: 2017Q1

REPORT INFORMATION
  Report Type: Report from Study
  Country: US (occurrence: US)
  Receive Date: 20170118
  Receipt Date: 20170327
  Transmission Date: 20170428
  Serious: Yes (Hospitalization)
  Sender: FDA-Public Use
  Company Number: US-EISAI MEDICAL RESEARCH-EC-2017-024121

PATIENT
  Age: 79 Year
  Sex: Male
  Weight: 84.4 kg

DRUGS (4)
  1. LENVATINIB [Suspect]
     Active Substance: LENVATINIB
     Indication: SARCOMA
     Route: 048
     Dates: start: 20170112, end: 20170116
  2. MIDAZOLAM [Concomitant]
     Active Substance: MIDAZOLAM HYDROCHLORIDE
     Indication: NEOPLASM
     Dosage: C1D-3, C1D1
     Route: 048
     Dates: start: 20170109, end: 20170112
  3. PLAVIX [Concomitant]
     Active Substance: CLOPIDOGREL BISULFATE
  4. TENORMIN [Concomitant]
     Active Substance: ATENOLOL

REACTIONS (1)
  - Rectal haemorrhage [Recovered/Resolved]

NARRATIVE: CASE EVENT DATE: 20170116
